FAERS Safety Report 13873073 (Version 1)
Quarter: 2017Q3

REPORT INFORMATION
  Report Type: Spontaneous
  Country: TR (occurrence: TR)
  Receive Date: 20170816
  Receipt Date: 20170816
  Transmission Date: 20171127
  Serious: Yes (Life-Threatening)
  Sender: FDA-Public Use
  Company Number: TR-DSJP-DSE-2017-129727

PATIENT

DRUGS (2)
  1. WAL PROFEN COLD AND SINUS [Concomitant]
     Active Substance: IBUPROFEN\PSEUDOEPHEDRINE HYDROCHLORIDE
     Indication: PRODUCT USED FOR UNKNOWN INDICATION
  2. HIPERSAR PLUS 20MG/12.5MG [Suspect]
     Active Substance: HYDROCHLOROTHIAZIDE\OLMESARTAN MEDOXOMIL
     Indication: HYPERTENSION
     Dosage: 20/12.5 MG. QD
     Route: 048
     Dates: start: 2016

REACTIONS (9)
  - Blood potassium decreased [Recovered/Resolved]
  - Heart valve incompetence [None]
  - Dizziness [None]
  - Asthenia [None]
  - Hypotension [None]
  - Rheumatic heart disease [None]
  - Fatigue [None]
  - Volume blood decreased [Recovered/Resolved]
  - Syncope [None]

NARRATIVE: CASE EVENT DATE: 20170809
